FAERS Safety Report 4662737-9 (Version None)
Quarter: 2005Q2

REPORT INFORMATION
  Report Type: 
  Country: None (occurrence: None)
  Receive Date: 20050516
  Receipt Date: 20050510
  Transmission Date: 20051028
  Serious: Yes (Disabling)
  Sender: FDA-Public Use
  Company Number: GB-GLAXOSMITHKLINE-B0380638A

PATIENT
  Age: 71 Year
  Sex: Female
  Weight: 60 kg

DRUGS (11)
  1. AMOXICILLIN [Suspect]
     Dosage: 2G CYCLIC
     Route: 042
     Dates: start: 20050423
  2. FLUCLOXACILLIN [Suspect]
     Dosage: 2G FOUR TIMES PER DAY
     Route: 042
     Dates: start: 20050421, end: 20050423
  3. GENTAMICIN [Suspect]
     Route: 042
     Dates: start: 20050421
  4. AMLODIPINE [Concomitant]
     Dosage: 5MG PER DAY
     Route: 048
     Dates: start: 20030101, end: 20050423
  5. LANSOPRAZOLE [Concomitant]
     Dosage: 30MG PER DAY
     Route: 048
     Dates: start: 20030418
  6. WARFARIN SODIUM [Concomitant]
     Route: 048
  7. ASPIRIN [Concomitant]
     Dosage: 75MG PER DAY
     Route: 048
     Dates: start: 20050426
  8. CLOPIDOGREL BISULFATE [Concomitant]
     Dosage: 75MG PER DAY
     Route: 048
     Dates: start: 20050423
  9. METOCLOPRAMIDE INJECTION [Concomitant]
     Dosage: 10MG FOUR TIMES PER DAY
     Route: 065
     Dates: start: 20050401, end: 20050426
  10. ATORVASTATIN CALCIUM [Concomitant]
     Route: 065
     Dates: end: 20050423
  11. PERINDOPRIL [Concomitant]
     Route: 065

REACTIONS (1)
  - RENAL FAILURE ACUTE [None]
